FAERS Safety Report 5048521-5 (Version None)
Quarter: 2006Q3

REPORT INFORMATION
  Report Type: 
  Country: None (occurrence: None)
  Receive Date: 20060712
  Receipt Date: 20060707
  Transmission Date: 20061208
  Serious: Yes (Disabling)
  Sender: FDA-Public Use
  Company Number: 2006UW14120

PATIENT
  Age: 47 Year
  Sex: Female

DRUGS (1)
  1. FASLODEX [Suspect]
     Route: 030
     Dates: start: 20060504

REACTIONS (1)
  - VOCAL CORD PARALYSIS [None]
